FAERS Safety Report 8609922-9 (Version None)
Quarter: 2012Q3

REPORT INFORMATION
  Report Type: 
  Country: None (occurrence: None)
  Receive Date: 20120821
  Receipt Date: 20120815
  Transmission Date: 20120928
  Serious: Yes (Hospitalization)
  Sender: FDA-Public Use
  Company Number: GB-TEVA-353953ISR

PATIENT
  Age: 65 Year
  Sex: Male
  Weight: 115 kg

DRUGS (10)
  1. RAMIPRIL [Suspect]
     Indication: HYPERTENSION
     Route: 048
     Dates: start: 20080401, end: 20111116
  2. BISOPROLOL FUMARATE [Concomitant]
  3. FUROSEMIDE [Concomitant]
  4. SPIRONOLACTONE [Concomitant]
  5. WARFARIN SODIUM [Concomitant]
  6. FEXOFENADINE [Concomitant]
  7. IPRATROPIUM BROMIDE [Concomitant]
  8. HYDROXYUREA [Concomitant]
  9. THIAMIN HCL TAB [Concomitant]
  10. OMEPRAZOLE [Concomitant]

REACTIONS (1)
  - LUPUS-LIKE SYNDROME [None]
